FAERS Safety Report 24073387 (Version 1)
Quarter: 2024Q3

REPORT INFORMATION
  Report Type: Spontaneous
  Country: TR (occurrence: TR)
  Receive Date: 20240710
  Receipt Date: 20240710
  Transmission Date: 20241016
  Serious: Yes (Other)
  Sender: RISING PHARMACEUTICALS
  Company Number: TR-RISINGPHARMA-TR-2024RISLIT00227

PATIENT
  Age: 9 Year
  Sex: Male

DRUGS (2)
  1. DOXYCYCLINE HYCLATE [Suspect]
     Active Substance: DOXYCYCLINE HYCLATE
     Indication: Brucellosis
     Route: 065
  2. RIFAMPIN [Concomitant]
     Active Substance: RIFAMPIN
     Indication: Brucellosis
     Route: 065

REACTIONS (1)
  - Lupus-like syndrome [Recovered/Resolved]
